FAERS Safety Report 5066909-3 (Version None)
Quarter: 2006Q3

REPORT INFORMATION
  Report Type: 
  Country: None (occurrence: None)
  Receive Date: 20060726
  Receipt Date: 20060712
  Transmission Date: 20061208
  Serious: Yes (Death)
  Sender: FDA-Public Use
  Company Number: 2006S1006412

PATIENT
  Age: 49 Year
  Sex: Male

DRUGS (2)
  1. CLOZAPINE [Suspect]
     Dosage: 25 MG; BID; PO
     Route: 048
     Dates: start: 20030101, end: 20060601
  2. CLOZAPINE [Suspect]
     Dosage: 200 MG; BID; PO
     Route: 048
     Dates: start: 20030101, end: 20060601

REACTIONS (1)
  - HYPOGLYCAEMIC COMA [None]
